FAERS Safety Report 8774764 (Version 1)
Quarter: 2012Q4

REPORT INFORMATION
  Report Type: 
  Country: US (occurrence: US)
  Receive Date: 20120910
  Receipt Date: 20120910
  Transmission Date: 20130627
  Serious: No
  Sender: FDA-Public Use
  Company Number: US-PFIZER INC-2012220736

PATIENT
  Age: 54 Year
  Sex: Female
  Weight: 77.1 kg

DRUGS (4)
  1. LIPITOR [Suspect]
     Indication: BLOOD CHOLESTEROL INCREASED
     Dosage: 20 mg, 1x/day
     Route: 048
  2. LIPITOR [Suspect]
     Dosage: 40 mg, 1x/day
     Route: 048
     Dates: end: 2012
  3. LIPITOR [Suspect]
     Dosage: 20 mg, 1x/day
     Dates: start: 2012
  4. ATENOLOL [Concomitant]
     Indication: HYPERTENSION
     Dosage: UNK

REACTIONS (2)
  - Liver function test abnormal [Unknown]
  - Hepatic enzyme increased [Unknown]
